FAERS Safety Report 6898126-6 (Version None)
Quarter: 2010Q3

REPORT INFORMATION
  Report Type: 
  Country: None (occurrence: None)
  Receive Date: 20100802
  Receipt Date: 20070907
  Transmission Date: 20110219
  Serious: No
  Sender: FDA-Public Use
  Company Number: US-PFIZER INC-2007033459

PATIENT
  Sex: Female
  Weight: 57.61 kg

DRUGS (3)
  1. LYRICA [Suspect]
     Indication: HEADACHE
     Route: 048
     Dates: start: 20070403
  2. LYRICA [Suspect]
     Indication: FACIAL NERVE DISORDER
  3. LYRICA [Suspect]
     Indication: SENSORY DISTURBANCE

REACTIONS (3)
  - DRY EYE [None]
  - MEIBOMIANITIS [None]
  - VISION BLURRED [None]
